FAERS Safety Report 11737467 (Version 1)
Quarter: 2015Q4

REPORT INFORMATION
  Report Type: Spontaneous
  Country: US (occurrence: US)
  Receive Date: 20151110
  Receipt Date: 20151110
  Transmission Date: 20160304
  Serious: No
  Sender: FDA-Public Use
  Company Number: US-ELI_LILLY_AND_COMPANY-US201202001511

PATIENT
  Age: 89 Year
  Sex: Female

DRUGS (5)
  1. FORTEO [Suspect]
     Active Substance: TERIPARATIDE
     Dosage: 20 UG, QD
  2. FORTEO [Suspect]
     Active Substance: TERIPARATIDE
     Dosage: 20 UG, QD
     Route: 065
  3. FORTEO [Suspect]
     Active Substance: TERIPARATIDE
     Dosage: 20 UG, QD
  4. FORTEO [Suspect]
     Active Substance: TERIPARATIDE
     Dosage: 20 UG, QD
  5. FORTEO [Suspect]
     Active Substance: TERIPARATIDE
     Indication: OSTEOPOROSIS
     Dosage: 20 UG, QD
     Route: 065
     Dates: start: 201107

REACTIONS (15)
  - Ligament sprain [Recovering/Resolving]
  - Neck pain [Unknown]
  - Asthenia [Recovering/Resolving]
  - Muscle spasms [Unknown]
  - Fall [Unknown]
  - Fall [Unknown]
  - Gastroenteritis viral [Recovering/Resolving]
  - Contusion [Unknown]
  - Vomiting [Recovering/Resolving]
  - Upper limb fracture [Recovering/Resolving]
  - Pain in extremity [Unknown]
  - Musculoskeletal pain [Recovered/Resolved]
  - Diarrhoea [Recovering/Resolving]
  - Ligament sprain [Unknown]
  - Malaise [Unknown]

NARRATIVE: CASE EVENT DATE: 201201
